FAERS Safety Report 23704830 (Version 1)
Quarter: 2024Q2

REPORT INFORMATION
  Report Type: Spontaneous
  Country: US (occurrence: US)
  Receive Date: 20240404
  Receipt Date: 20240404
  Transmission Date: 20240716
  Serious: Yes (Other)
  Sender: FDA-Public Use
  Company Number: US-MLMSERVICE-20240314-4885902-1

PATIENT
  Age: 16 Year
  Sex: Female

DRUGS (27)
  1. LINEZOLID [Suspect]
     Active Substance: LINEZOLID
     Indication: Tuberculosis of eye
     Dosage: 600 MILLIGRAM, ONCE A DAY
     Route: 042
  2. LINEZOLID [Suspect]
     Active Substance: LINEZOLID
     Indication: Tuberculosis
  3. LINEZOLID [Suspect]
     Active Substance: LINEZOLID
     Indication: Meningitis tuberculous
  4. LINEZOLID [Suspect]
     Active Substance: LINEZOLID
     Indication: Pulmonary tuberculosis
  5. LINEZOLID [Suspect]
     Active Substance: LINEZOLID
     Indication: Tuberculosis of central nervous system
  6. DEXAMETHASONE [Suspect]
     Active Substance: DEXAMETHASONE
     Indication: Meningitis tuberculous
     Dosage: 10 MILLIGRAM
     Route: 065
  7. DEXAMETHASONE [Suspect]
     Active Substance: DEXAMETHASONE
     Indication: Pulmonary tuberculosis
  8. DEXAMETHASONE [Suspect]
     Active Substance: DEXAMETHASONE
     Indication: Tuberculosis of central nervous system
  9. DEXAMETHASONE [Suspect]
     Active Substance: DEXAMETHASONE
     Indication: Tuberculosis
  10. DEXAMETHASONE [Suspect]
     Active Substance: DEXAMETHASONE
     Indication: Tuberculosis of eye
  11. LEVOFLOXACIN [Suspect]
     Active Substance: LEVOFLOXACIN
     Indication: Prophylaxis
     Dosage: 750 MILLIGRAM, ONCE A DAY
     Route: 042
  12. ISONIAZID [Suspect]
     Active Substance: ISONIAZID
     Indication: Meningitis tuberculous
     Dosage: UNK, BEFORE DIAGNOSIS
     Route: 065
  13. ISONIAZID [Suspect]
     Active Substance: ISONIAZID
     Indication: Latent tuberculosis
     Dosage: 300 MILLIGRAM, ONCE A DAY (VIA NASOGASTRIC TUBE)
     Route: 065
  14. ISONIAZID [Suspect]
     Active Substance: ISONIAZID
     Indication: Pulmonary tuberculosis
  15. ISONIAZID [Suspect]
     Active Substance: ISONIAZID
     Indication: Tuberculosis
  16. ISONIAZID [Suspect]
     Active Substance: ISONIAZID
     Indication: Tuberculosis of eye
  17. ISONIAZID [Suspect]
     Active Substance: ISONIAZID
     Indication: Tuberculosis of central nervous system
  18. RIFAMPIN [Suspect]
     Active Substance: RIFAMPIN
     Indication: Pulmonary tuberculosis
     Dosage: 20 MILLIGRAM/KILOGRAM, ONCE A DAY
     Route: 042
  19. RIFAMPIN [Suspect]
     Active Substance: RIFAMPIN
     Indication: Tuberculosis
     Dosage: 600 MILLIGRAM VIA NASOGASTRIC TUBE
     Route: 065
  20. RIFAMPIN [Suspect]
     Active Substance: RIFAMPIN
     Indication: Tuberculosis of central nervous system
  21. RIFAMPIN [Suspect]
     Active Substance: RIFAMPIN
     Indication: Tuberculosis of eye
  22. RIFAMPIN [Suspect]
     Active Substance: RIFAMPIN
     Indication: Meningitis tuberculous
  23. PYRAZINAMIDE [Concomitant]
     Active Substance: PYRAZINAMIDE
     Indication: Tuberculosis of central nervous system
     Dosage: 2 GRAM VIA NASOGASTRIC TUBE
     Route: 065
  24. PYRAZINAMIDE [Concomitant]
     Active Substance: PYRAZINAMIDE
     Indication: Tuberculosis
  25. PYRAZINAMIDE [Concomitant]
     Active Substance: PYRAZINAMIDE
     Indication: Pulmonary tuberculosis
  26. PYRAZINAMIDE [Concomitant]
     Active Substance: PYRAZINAMIDE
     Indication: Meningitis tuberculous
  27. PYRAZINAMIDE [Concomitant]
     Active Substance: PYRAZINAMIDE
     Indication: Tuberculosis of eye

REACTIONS (3)
  - Pancytopenia [Recovered/Resolved]
  - Condition aggravated [Recovering/Resolving]
  - Rebound effect [Unknown]
